FAERS Safety Report 4396218-7 (Version None)
Quarter: 2004Q3

REPORT INFORMATION
  Report Type: 
  Country: None (occurrence: None)
  Receive Date: 20040708
  Receipt Date: 20040623
  Transmission Date: 20050211
  Serious: Yes (Hospitalization)
  Sender: FDA-Public Use
  Company Number: 2004-BP-04971NB

PATIENT
  Age: 44 Year
  Sex: Male

DRUGS (8)
  1. MICARDIS [Suspect]
     Dosage: 80 MG (NR); PO
     Route: 048
     Dates: start: 20040122
  2. LIPITOR [Suspect]
     Dosage: 5 MG (NR); PO
     Route: 048
     Dates: start: 20040122
  3. NORVASC [Concomitant]
  4. ENALAPRIL MALEATE [Concomitant]
  5. SINLESTAL (PROBUCOL) (NR) [Concomitant]
  6. LASIX (CALCIUM POLYSTYRENE SULFONATE) (NR) [Concomitant]
  7. KALIMATE (CALCIUM POLYSTYRENE SULFONATE) (NR) [Concomitant]
  8. CARDENALIN (DOXAZOSIN MESILATE) (TA) [Concomitant]

REACTIONS (1)
  - RENAL FAILURE [None]
